FAERS Safety Report 5310955-9 (Version None)
Quarter: 2007Q2

REPORT INFORMATION
  Report Type: 
  Country: None (occurrence: None)
  Receive Date: 20070430
  Receipt Date: 20070418
  Transmission Date: 20071010
  Serious: Yes (Other)
  Sender: FDA-Public Use
  Company Number: KR-JNJFOC-20070404129

PATIENT
  Age: 25 Year
  Sex: Male

DRUGS (3)
  1. TYLENOL (CAPLET) [Suspect]
     Route: 048
  2. TYLENOL (CAPLET) [Suspect]
     Indication: NASOPHARYNGITIS
     Route: 048
  3. UNSPECIFIED MEDICATIONS [Concomitant]
     Indication: NASOPHARYNGITIS

REACTIONS (3)
  - DYSPNOEA [None]
  - FACE OEDEMA [None]
  - HYPERSENSITIVITY [None]
